FAERS Safety Report 7621808-5 (Version None)
Quarter: 2011Q3

REPORT INFORMATION
  Report Type: 
  Country: None (occurrence: None)
  Receive Date: 20110720
  Receipt Date: 20110712
  Transmission Date: 20111222
  Serious: Yes (Other)
  Sender: FDA-Public Use
  Company Number: US-BIOGENIDEC-2011BI023840

PATIENT
  Age: 59 Year
  Sex: Female

DRUGS (2)
  1. TYSABRI [Suspect]
     Indication: MULTIPLE SCLEROSIS
     Route: 042
     Dates: start: 20101117
  2. SEIZURE MEDICATION (NOS) [Concomitant]
     Indication: CONVULSION

REACTIONS (2)
  - CONVULSION [None]
  - MULTIPLE SCLEROSIS [None]
